FAERS Safety Report 6305208-6 (Version None)
Quarter: 2009Q3

REPORT INFORMATION
  Report Type: 
  Country: None (occurrence: None)
  Receive Date: 20090811
  Receipt Date: 20090729
  Transmission Date: 20100115
  Serious: Yes (Hospitalization)
  Sender: FDA-Public Use
  Company Number: IT-ELI_LILLY_AND_COMPANY-IT200907004019

PATIENT
  Sex: Female
  Weight: 67 kg

DRUGS (10)
  1. PEMETREXED [Suspect]
     Indication: NON-SMALL CELL LUNG CANCER METASTATIC
     Dosage: 500 MG/M2, OTHER
     Route: 042
  2. CISPLATIN [Suspect]
     Indication: NON-SMALL CELL LUNG CANCER
     Dosage: 75 MG/M2, OTHER
     Route: 042
  3. BEST SUPPORTIVE CARE [Suspect]
     Indication: NON-SMALL CELL LUNG CANCER METASTATIC
     Dates: start: 20090529
  4. PEMETREXED [Suspect]
     Indication: NON-SMALL CELL LUNG CANCER
     Dates: start: 20090529
  5. FOLIC ACID [Concomitant]
     Dates: start: 20090216
  6. VITAMIN B-12 [Concomitant]
     Dates: start: 20090216
  7. DEXAMETHASONE [Concomitant]
     Dates: start: 20090216
  8. EPARINA [Concomitant]
     Dates: start: 20090401
  9. FERRO                              /00023503/ [Concomitant]
     Indication: ANAEMIA
     Dates: start: 20090529
  10. DARBEPOETIN ALFA [Concomitant]
     Indication: ANAEMIA
     Dates: start: 20090529

REACTIONS (2)
  - CHEST PAIN [None]
  - DYSPNOEA [None]
